FAERS Safety Report 6477363-9 (Version None)
Quarter: 2009Q4

REPORT INFORMATION
  Report Type: 
  Country: None (occurrence: None)
  Receive Date: 20091207
  Receipt Date: 20091105
  Transmission Date: 20100525
  Serious: No
  Sender: FDA-Public Use
  Company Number: US-BAYER-200938641NA

PATIENT
  Age: 34 Year
  Sex: Female
  Weight: 104 kg

DRUGS (1)
  1. YAZ [Suspect]
     Indication: CONTRACEPTION
     Route: 048
     Dates: start: 20090501

REACTIONS (2)
  - ADVERSE EVENT [None]
  - VAGINAL HAEMORRHAGE [None]
